FAERS Safety Report 21236090 (Version 3)
Quarter: 2023Q1

REPORT INFORMATION
  Report Type: Other
  Country: KR (occurrence: KR)
  Receive Date: 20220822
  Receipt Date: 20230324
  Transmission Date: 20230418
  Serious: Yes (Hospitalization, Other)
  Sender: FDA-Public Use
  Company Number: KR-TOLMAR, INC.-21KR028356

PATIENT
  Age: 68 Year
  Sex: Male
  Weight: 78.7 kg

DRUGS (4)
  1. ELIGARD [Suspect]
     Active Substance: LEUPROLIDE ACETATE
     Indication: Prostate cancer
     Dosage: 22.5 MILLIGRAM, Q 3 MONTH
     Route: 058
     Dates: start: 20190503
  2. ENZALUTAMIDE [Suspect]
     Active Substance: ENZALUTAMIDE
     Indication: Prostate cancer
     Dosage: UNK, QD
     Route: 048
     Dates: start: 20190503
  3. ASPIRIN [Suspect]
     Active Substance: ASPIRIN
     Indication: Dizziness
     Dosage: 100 MILLIGRAM, QD
     Route: 048
     Dates: start: 20210528, end: 20210608
  4. LIPIWON [Concomitant]
     Indication: Hyperlipidaemia
     Dosage: UNK
     Dates: start: 20210220

REACTIONS (1)
  - Cystitis radiation [Recovered/Resolved]

NARRATIVE: CASE EVENT DATE: 20210530
